FAERS Safety Report 16681841 (Version 2)
Quarter: 2019Q4

REPORT INFORMATION
  Report Type: Spontaneous
  Country: FR (occurrence: FR)
  Receive Date: 20190808
  Receipt Date: 20191022
  Transmission Date: 20200122
  Serious: Yes (Hospitalization, Other)
  Sender: FDA-Public Use
  Company Number: FR-SA-2019SA215429

PATIENT
  Age: 71 Year
  Sex: Female

DRUGS (4)
  1. MORPHINE [Concomitant]
     Active Substance: MORPHINE
  2. KEVZARA [Suspect]
     Active Substance: SARILUMAB
     Indication: RHEUMATOID ARTHRITIS
     Dosage: 200 MG
     Dates: start: 20190312
  3. RITUXIMAB. [Concomitant]
     Active Substance: RITUXIMAB
  4. FENTANYL. [Concomitant]
     Active Substance: FENTANYL

REACTIONS (9)
  - Middle insomnia [Unknown]
  - Constipation [Not Recovered/Not Resolved]
  - Erythema [Unknown]
  - Back pain [Unknown]
  - Hypokinesia [Unknown]
  - Spinal fracture [Unknown]
  - Productive cough [Recovered/Resolved]
  - Pain in extremity [Unknown]
  - Condition aggravated [Unknown]

NARRATIVE: CASE EVENT DATE: 201907
